FAERS Safety Report 4913946-2 (Version None)
Quarter: 2006Q1

REPORT INFORMATION
  Report Type: 
  Country: None (occurrence: None)
  Receive Date: 20060210
  Receipt Date: 20060127
  Transmission Date: 20060701
  Serious: Yes (Disabling)
  Sender: FDA-Public Use
  Company Number: 2006S1000967

PATIENT
  Sex: Female

DRUGS (1)
  1. ESTRADIOL [Suspect]
     Indication: HORMONE REPLACEMENT THERAPY
     Dates: start: 19980101

REACTIONS (4)
  - BREAST CANCER [None]
  - CEREBRAL DISORDER [None]
  - EMOTIONAL DISTRESS [None]
  - PAIN [None]
